FAERS Safety Report 6192739-5 (Version None)
Quarter: 2009Q2

REPORT INFORMATION
  Report Type: 
  Country: None (occurrence: None)
  Receive Date: 20090518
  Receipt Date: 20090514
  Transmission Date: 20091009
  Serious: Yes (Hospitalization)
  Sender: FDA-Public Use
  Company Number: US-BRISTOL-MYERS SQUIBB COMPANY-13764055

PATIENT
  Age: 62 Year
  Sex: Male
  Weight: 85 kg

DRUGS (2)
  1. CISPLATIN [Suspect]
     Indication: HEAD AND NECK CANCER
     Dosage: START DATE OF FIRST COURSE:13MAR07.START DATE OF PRIMARY AE:20APR07.
     Dates: start: 20070403, end: 20070403
  2. RADIATION THERAPY [Suspect]
     Indication: HEAD AND NECK CANCER
     Dosage: 1 DF= 72 GY.NO.OF FRACTION:42 AND NO.OF ELAPSED DAYS:42
     Dates: start: 20070424, end: 20070424

REACTIONS (6)
  - DEHYDRATION [None]
  - FEBRILE NEUTROPENIA [None]
  - LYMPHOPENIA [None]
  - NEUTROPHIL COUNT DECREASED [None]
  - PLATELET COUNT DECREASED [None]
  - WHITE BLOOD CELL COUNT DECREASED [None]
